FAERS Safety Report 11257849 (Version 1)
Quarter: 2015Q3

REPORT INFORMATION
  Report Type: Report from Study
  Country: CA (occurrence: CA)
  Receive Date: 20150710
  Receipt Date: 20150710
  Transmission Date: 20151125
  Serious: Yes (Other)
  Sender: FDA-Public Use
  Company Number: CA-ROCHE-1602950

PATIENT
  Age: 59 Year
  Sex: Male

DRUGS (8)
  1. ESBRIET [Suspect]
     Active Substance: PIRFENIDONE
     Route: 048
     Dates: start: 20150215
  2. CITALOPRAM [Concomitant]
     Active Substance: CITALOPRAM HYDROBROMIDE
  3. ESBRIET [Suspect]
     Active Substance: PIRFENIDONE
     Route: 048
     Dates: start: 20150222
  4. AMLODIPINE [Concomitant]
     Active Substance: AMLODIPINE BESYLATE
  5. ZOPICLONE [Concomitant]
     Active Substance: ZOPICLONE
     Route: 065
  6. LOSEC [Concomitant]
     Active Substance: OMEPRAZOLE
  7. ESBRIET [Suspect]
     Active Substance: PIRFENIDONE
     Indication: IDIOPATHIC PULMONARY FIBROSIS
     Route: 048
     Dates: start: 20150208
  8. TEVA-RAMIPRIL [Concomitant]

REACTIONS (6)
  - Facial bones fracture [Not Recovered/Not Resolved]
  - Asthenia [Unknown]
  - Laceration [Unknown]
  - Dizziness [Recovered/Resolved]
  - Syncope [Recovered/Resolved]
  - Atrial fibrillation [Unknown]

NARRATIVE: CASE EVENT DATE: 20150629
